FAERS Safety Report 14183189 (Version 1)
Quarter: 2017Q4

REPORT INFORMATION
  Report Type: Spontaneous
  Country: US (occurrence: US)
  Receive Date: 20171113
  Receipt Date: 20171113
  Transmission Date: 20180321
  Serious: Yes (Hospitalization, Other)
  Sender: FDA-Public Use
  Company Number: US-ASTRAZENECA-2017SF13737

PATIENT
  Age: 67 Year
  Sex: Male
  Weight: 104.3 kg

DRUGS (10)
  1. BRILINTA [Suspect]
     Active Substance: TICAGRELOR
     Indication: STENT PLACEMENT
     Route: 048
     Dates: start: 20170627
  2. LIPITOR [Concomitant]
     Active Substance: ATORVASTATIN CALCIUM
     Indication: PROPHYLAXIS
     Route: 048
     Dates: start: 201701
  3. NEXIUM [Suspect]
     Active Substance: ESOMEPRAZOLE MAGNESIUM
     Indication: GASTROOESOPHAGEAL REFLUX DISEASE
     Dosage: GENERIC 40 MG DAILY
     Route: 048
  4. NEXIUM [Suspect]
     Active Substance: ESOMEPRAZOLE MAGNESIUM
     Indication: GASTROOESOPHAGEAL REFLUX DISEASE
     Dosage: GENERIC 40 MG TWO TIMES A DAY
     Route: 048
  5. LIPITOR [Concomitant]
     Active Substance: ATORVASTATIN CALCIUM
     Indication: BLOOD CHOLESTEROL INCREASED
     Route: 048
     Dates: start: 201701
  6. VITAMINS NOS [Concomitant]
     Active Substance: VITAMINS
     Dosage: DAILY
     Route: 048
  7. TELMISARTAN. [Concomitant]
     Active Substance: TELMISARTAN
     Indication: HYPERTENSION
     Route: 048
     Dates: start: 2012
  8. FINASTERIDE. [Concomitant]
     Active Substance: FINASTERIDE
     Indication: PROSTATE CANCER
     Route: 048
     Dates: start: 2001
  9. NEXIUM [Suspect]
     Active Substance: ESOMEPRAZOLE MAGNESIUM
     Indication: GASTROOESOPHAGEAL REFLUX DISEASE
     Route: 048
     Dates: start: 2001
  10. BRILINTA [Suspect]
     Active Substance: TICAGRELOR
     Indication: VASCULAR STENT STENOSIS
     Route: 048
     Dates: start: 20170627

REACTIONS (12)
  - Haematuria [Unknown]
  - Chromaturia [Recovered/Resolved]
  - Tachycardia [Unknown]
  - Haemorrhage urinary tract [Unknown]
  - Radiation proctitis [Unknown]
  - Dyspepsia [Recovered/Resolved]
  - Hyperchlorhydria [Recovered/Resolved]
  - Coronary artery stenosis [Unknown]
  - Prostate cancer [Unknown]
  - Atrial fibrillation [Unknown]
  - Radiation injury [Unknown]
  - Cystitis radiation [Unknown]

NARRATIVE: CASE EVENT DATE: 2009
